FAERS Safety Report 13853104 (Version 1)
Quarter: 2017Q3

REPORT INFORMATION
  Report Type: Other
  Country: IT (occurrence: IT)
  Receive Date: 20170810
  Receipt Date: 20170810
  Transmission Date: 20171127
  Serious: Yes (Hospitalization)
  Sender: FDA-Public Use
  Company Number: IT-AUROBINDO-AUR-APL-2013-03488

PATIENT

DRUGS (6)
  1. ZITROMAX [Suspect]
     Active Substance: AZITHROMYCIN
     Indication: PRODUCT USED FOR UNKNOWN INDICATION
     Dosage: 3 DF,TOTAL,
     Route: 048
     Dates: start: 20130218, end: 20130218
  2. LEVOCETIRIZINE DIHYDROCHLORIDE. [Suspect]
     Active Substance: LEVOCETIRIZINE DIHYDROCHLORIDE
     Indication: PRODUCT USED FOR UNKNOWN INDICATION
     Dosage: 15 DF,TOTAL,
     Route: 048
     Dates: start: 20130218, end: 20130218
  3. PURSENNID                          /00142207/ [Suspect]
     Active Substance: SENNOSIDES A AND B
     Indication: PRODUCT USED FOR UNKNOWN INDICATION
     Dosage: 30 DF,TOTAL,
     Route: 048
     Dates: start: 20130218, end: 20130218
  4. ALMOTRIPTAN. [Suspect]
     Active Substance: ALMOTRIPTAN
     Indication: PRODUCT USED FOR UNKNOWN INDICATION
     Dosage: 5 DF,TOTAL,
     Route: 048
     Dates: start: 20130218, end: 20130218
  5. RAMIPRIL AUROBINDO COMPRESSE 5MG [Suspect]
     Active Substance: RAMIPRIL
     Indication: PRODUCT USED FOR UNKNOWN INDICATION
     Dosage: 7 DF,TOTAL,
     Route: 048
     Dates: start: 20130218, end: 20130218
  6. PARACETAMOL [Suspect]
     Active Substance: ACETAMINOPHEN
     Indication: PRODUCT USED FOR UNKNOWN INDICATION
     Dosage: 4 DF,TOTAL,
     Route: 048
     Dates: start: 20130218, end: 20130218

REACTIONS (4)
  - Intentional product misuse [Unknown]
  - Intentional overdose [Unknown]
  - Somnolence [Unknown]
  - Confusional state [Unknown]

NARRATIVE: CASE EVENT DATE: 20130218
